FAERS Safety Report 18777449 (Version 1)
Quarter: 2021Q1

REPORT INFORMATION
  Report Type: Spontaneous
  Country: US (occurrence: US)
  Receive Date: 20210122
  Receipt Date: 20210122
  Transmission Date: 20210419
  Serious: No
  Sender: FDA-Public Use
  Company Number: US-PFIZER INC-2021005487

PATIENT
  Age: 62 Year
  Sex: Male

DRUGS (1)
  1. INLYTA [Suspect]
     Active Substance: AXITINIB
     Dosage: 1 MG
     Dates: start: 20200606

REACTIONS (6)
  - Fatigue [Unknown]
  - Dyspnoea [Unknown]
  - Product dose omission issue [Unknown]
  - Diarrhoea [Unknown]
  - COVID-19 [Unknown]
  - Dry mouth [Unknown]
